FAERS Safety Report 5149844-1 (Version None)
Quarter: 2006Q4

REPORT INFORMATION
  Report Type: 
  Country: None (occurrence: None)
  Receive Date: 20061108
  Receipt Date: 20061026
  Transmission Date: 20070319
  Serious: Yes (Other)
  Sender: FDA-Public Use
  Company Number: 2006116966

PATIENT
  Age: 54 Year
  Sex: Female
  Weight: 83.9154 kg

DRUGS (10)
  1. LYRICA [Suspect]
     Indication: NEURALGIA
     Dosage: 300 MG (100 MG, 3 IN 1 D)
     Dates: start: 20060829
  2. OXYCONTIN [Suspect]
  3. RITALIN [Concomitant]
  4. ZOLOFT [Concomitant]
  5. NAPROXEN [Concomitant]
  6. RANITIDINE [Concomitant]
  7. ZETIA [Concomitant]
  8. ADVAIR DISKUS 100/50 [Concomitant]
  9. VICODIN [Concomitant]
  10. GABAPENTIN [Concomitant]

REACTIONS (7)
  - COLD SWEAT [None]
  - CRYING [None]
  - DEPRESSED MOOD [None]
  - FORMICATION [None]
  - HYPERHIDROSIS [None]
  - NAUSEA [None]
  - VISION BLURRED [None]
